FAERS Safety Report 9897985 (Version 3)
Quarter: 2014Q2

REPORT INFORMATION
  Report Type: Spontaneous
  Country: JP (occurrence: JP)
  Receive Date: 20140214
  Receipt Date: 20140530
  Transmission Date: 20141212
  Serious: Yes (Life-Threatening)
  Sender: FDA-Public Use
  Company Number: JP-GE HEALTHCARE MEDICAL DIAGNOSTICS-OMPQ-PR-1402S-0131

PATIENT
  Age: 78 Year
  Sex: Female
  Weight: 53 kg

DRUGS (8)
  1. OMNIPAQUE [Suspect]
     Indication: EMBOLISM
     Route: 042
     Dates: start: 20140201, end: 20140201
  2. OMNIPAQUE [Suspect]
     Indication: DIAGNOSTIC PROCEDURE
  3. AMLODIPINE [Concomitant]
  4. TAKEPRON [Concomitant]
  5. SELARA [Concomitant]
  6. PLAVIX [Concomitant]
  7. GRAMALIL [Concomitant]
  8. ZOSYN [Concomitant]

REACTIONS (1)
  - Anaphylactoid shock [Recovered/Resolved]
